FAERS Safety Report 9537773 (Version 3)
Quarter: 2014Q2

REPORT INFORMATION
  Report Type: Spontaneous
  Country: JP (occurrence: JP)
  Receive Date: 20130919
  Receipt Date: 20140519
  Transmission Date: 20141212
  Serious: Yes (Life-Threatening, Hospitalization, Disabling, Other)
  Sender: FDA-Public Use
  Company Number: JP-009507513-1309JPN006609

PATIENT
  Age: 67 Year
  Sex: Female

DRUGS (3)
  1. DECADRON PHOSPHATE INJECTION 3.3MG [Suspect]
     Indication: ANALGESIC THERAPY
     Dosage: 3.3 MG, ONCE/ 1A
     Route: 051
     Dates: start: 20111202, end: 20111202
  2. [THERAPY UNSPECIFIED] [Suspect]
     Dosage: DAILY DOSE UNKNOWN
     Route: 065
  3. XYLOCAINE INJECTION POLYAMP [Concomitant]
     Indication: ANALGESIC THERAPY
     Dosage: 5 ML, ONCE
     Route: 051
     Dates: start: 20111202, end: 20111202

REACTIONS (5)
  - Mental impairment [Unknown]
  - Anaphylactic shock [Unknown]
  - Hypoxic-ischaemic encephalopathy [Unknown]
  - Cardio-respiratory arrest [Recovered/Resolved]
  - Muscular weakness [Unknown]
